FAERS Safety Report 6335824-7 (Version None)
Quarter: 2009Q3

REPORT INFORMATION
  Report Type: 
  Country: None (occurrence: None)
  Receive Date: 20090828
  Receipt Date: 20090813
  Transmission Date: 20100115
  Serious: Yes (Other)
  Sender: FDA-Public Use
  Company Number: 8050744

PATIENT
  Sex: Male

DRUGS (2)
  1. KEPPRA [Suspect]
  2. CARBAMAZEPINE [Concomitant]

REACTIONS (3)
  - DROP ATTACKS [None]
  - HEAD INJURY [None]
  - TONIC CONVULSION [None]
